FAERS Safety Report 18223399 (Version 1)
Quarter: 2020Q3

REPORT INFORMATION
  Report Type: Spontaneous
  Country: GB (occurrence: GB)
  Receive Date: 20200902
  Receipt Date: 20200902
  Transmission Date: 20201103
  Serious: Yes (Disabling, Other)
  Sender: FDA-Public Use
  Company Number: GB-JNJFOC-20200834746

PATIENT
  Age: 78 Year
  Sex: Male
  Weight: 87 kg

DRUGS (8)
  1. ATORVASTATIN [Concomitant]
     Active Substance: ATORVASTATIN
     Dosage: NIGHT
     Dates: start: 20190613
  2. METFORMIN HYDROCHLORIDE. [Concomitant]
     Active Substance: METFORMIN HYDROCHLORIDE
     Dosage: WITH EVENING MEAL, F...
     Dates: start: 20200511
  3. GLICLAZIDE [Concomitant]
     Active Substance: GLICLAZIDE
     Dates: start: 20200610
  4. LINAGLIPTIN [Concomitant]
     Active Substance: LINAGLIPTIN
     Dates: start: 20200303
  5. INVOKANA [Suspect]
     Active Substance: CANAGLIFLOZIN
     Indication: TYPE 2 DIABETES MELLITUS
     Route: 048
     Dates: start: 20200427
  6. NAPROXEN. [Concomitant]
     Active Substance: NAPROXEN
     Dates: start: 20200617, end: 20200618
  7. ALLOPURINOL. [Concomitant]
     Active Substance: ALLOPURINOL
     Dates: start: 20190613
  8. MICARDIS [Concomitant]
     Active Substance: TELMISARTAN
     Dates: start: 20190613

REACTIONS (2)
  - Joint swelling [Unknown]
  - Arthralgia [Recovering/Resolving]

NARRATIVE: CASE EVENT DATE: 20200427
